FAERS Safety Report 25679788 (Version 1)
Quarter: 2025Q3

REPORT INFORMATION
  Report Type: Spontaneous
  Country: CN (occurrence: CN)
  Receive Date: 20250814
  Receipt Date: 20250814
  Transmission Date: 20251021
  Serious: Yes (Other)
  Sender: Kenvue
  Company Number: CN-KENVUE-20250804079

PATIENT

DRUGS (5)
  1. CHILDRENS MOTRIN [Suspect]
     Active Substance: IBUPROFEN
     Indication: Pyrexia
     Dosage: 3 MILLILITER, FOUR TIME A DAY (Q6H)
     Route: 048
     Dates: start: 20250727, end: 20250730
  2. CEFIXIME [Suspect]
     Active Substance: CEFIXIME
     Indication: Pyrexia
     Dosage: 30 MILLIGRAM, TWICE A DAY
     Route: 048
     Dates: start: 20250727, end: 20250730
  3. CEFIXIME [Suspect]
     Active Substance: CEFIXIME
     Indication: Upper respiratory tract infection
  4. MEZLOCILLIN [Concomitant]
     Active Substance: MEZLOCILLIN
     Indication: Anti-infective therapy
     Dosage: 0.65 GRAM, TWICE A DAY
     Route: 065
     Dates: start: 20250730
  5. DEXTROSE [Concomitant]
     Active Substance: DEXTROSE MONOHYDRATE
     Indication: Anti-infective therapy
     Dosage: 100 MILLILITER, TWICE A DAY
     Route: 065
     Dates: start: 20250730

REACTIONS (2)
  - White blood cell count decreased [Recovered/Resolved]
  - Product administration error [Unknown]

NARRATIVE: CASE EVENT DATE: 20250727
